FAERS Safety Report 4438809-0 (Version None)
Quarter: 2004Q3

REPORT INFORMATION
  Report Type: 
  Country: None (occurrence: None)
  Receive Date: 20040830
  Receipt Date: 20040820
  Transmission Date: 20050211
  Serious: Yes (Other)
  Sender: FDA-Public Use
  Company Number: STA-AE-04-MTX-377

PATIENT
  Age: 72 Year

DRUGS (3)
  1. METHOTREXATE (METHOTREXATE, UNSPEC) [Suspect]
  2. PREDNISONE [Suspect]
  3. UNSPECIFIED ANTI-INFLAMMATORY AGENT [Suspect]
     Indication: RHEUMATOID ARTHRITIS

REACTIONS (1)
  - DISSEMINATED TUBERCULOSIS [None]
